FAERS Safety Report 5597001-7 (Version None)
Quarter: 2007Q4

REPORT INFORMATION
  Report Type: 
  Country: None (occurrence: None)
  Receive Date: 20071220
  Receipt Date: 20070703
  Transmission Date: 20080405
  Serious: No
  Sender: FDA-Public Use
  Company Number: 265144

PATIENT
  Age: 70 Year
  Sex: Male

DRUGS (1)
  1. NOVOLOG MIX 70/30 FLEXPEN (INSULIN ASPART) SUSPENSION FOR INJECTION, 1 [Suspect]
     Indication: DIABETES MELLITUS
     Dosage: 20 IU, BID
     Dates: start: 20060901

REACTIONS (1)
  - URTICARIA [None]
